FAERS Safety Report 5795355-X (Version None)
Quarter: 2008Q2

REPORT INFORMATION
  Report Type: 
  Country: None (occurrence: None)
  Receive Date: 20080626
  Receipt Date: 20080610
  Transmission Date: 20081010
  Serious: Yes (Other)
  Sender: FDA-Public Use
  Company Number: ISPH-2008-0125

PATIENT
  Age: 84 Year
  Sex: Female
  Weight: 49.9 kg

DRUGS (10)
  1. AZASITE [Suspect]
     Indication: DRY EYE
     Dosage: 1 GTT, QD, OPTHALMIC
     Route: 047
     Dates: start: 20080525, end: 20080610
  2. AZASITE [Suspect]
     Indication: EYE INFECTION
     Dosage: 1 GTT, QD, OPTHALMIC
     Route: 047
     Dates: start: 20080525, end: 20080610
  3. PRAVASTATIN SODIUM [Concomitant]
  4. ASPIRIN [Concomitant]
  5. MULTIVITAMIN [Concomitant]
  6. FLAXSEED OIL (LINUM USITATISSIMUM SEED OIL) [Concomitant]
  7. CALCIUM (CALCIUM) [Concomitant]
  8. RESTASIS (CICLOSPORIN) [Concomitant]
  9. REFRESH PLUS (CARMELLOSE SODIUM, MAGNESIUM CHLORIDE ANHYDROUS, POTASSI [Concomitant]
  10. REFRESH CELLUVISC (CARMELLOSE SODIUM) [Concomitant]

REACTIONS (7)
  - BLINDNESS UNILATERAL [None]
  - BLISTER [None]
  - EYE SWELLING [None]
  - HERPES ZOSTER [None]
  - PRURITUS [None]
  - SWELLING FACE [None]
  - VISUAL ACUITY REDUCED [None]
